FAERS Safety Report 10978562 (Version 1)
Quarter: 2015Q2

REPORT INFORMATION
  Report Type: Spontaneous
  Country: BG (occurrence: BG)
  Receive Date: 20150402
  Receipt Date: 20150402
  Transmission Date: 20150821
  Serious: Yes (Hospitalization, Other)
  Sender: FDA-Public Use
  Company Number: PHHY2015BG036486

PATIENT
  Age: 59 Year
  Sex: Male

DRUGS (1)
  1. METHOTREXATE (METHOTREXATE SODIUM) [Suspect]
     Active Substance: METHOTREXATE SODIUM
     Indication: ERYTHRODERMIC PSORIASIS
     Dosage: 10 MG, QD
     Route: 048

REACTIONS (13)
  - Nausea [Recovering/Resolving]
  - Hepatitis toxic [Recovering/Resolving]
  - Decreased appetite [Recovering/Resolving]
  - Chromaturia [Recovering/Resolving]
  - Malaise [Recovering/Resolving]
  - Medication error [Recovering/Resolving]
  - Vomiting [Recovering/Resolving]
  - General physical health deterioration [Recovering/Resolving]
  - Skin erosion [Recovering/Resolving]
  - Pyrexia [Recovering/Resolving]
  - Drug interaction [Recovering/Resolving]
  - Chills [Recovering/Resolving]
  - Bicytopenia [Recovering/Resolving]
